FAERS Safety Report 10880127 (Version 8)
Quarter: 2017Q1

REPORT INFORMATION
  Report Type: Spontaneous
  Country: US (occurrence: US)
  Receive Date: 20150302
  Receipt Date: 20170323
  Transmission Date: 20170428
  Serious: Yes (Other)
  Sender: FDA-Public Use
  Company Number: US-PFIZER INC-2015071392

PATIENT
  Age: 75 Year
  Sex: Female
  Weight: 88 kg

DRUGS (30)
  1. LYRICA [Suspect]
     Active Substance: PREGABALIN
     Indication: NEURALGIA
     Dosage: 75 MG, 1X/DAY
     Route: 048
     Dates: start: 20130812, end: 20130812
  2. LYRICA [Suspect]
     Active Substance: PREGABALIN
     Dosage: 75 MG, UNK
     Route: 048
     Dates: start: 201312
  3. LYRICA [Suspect]
     Active Substance: PREGABALIN
     Dosage: 100 MG, 3X/DAY
     Route: 048
  4. LYRICA [Suspect]
     Active Substance: PREGABALIN
     Dosage: 50 MG, 2X/DAY
     Route: 048
     Dates: start: 20150116
  5. COUMADINE [Concomitant]
     Active Substance: WARFARIN SODIUM
     Dosage: 2.5 MG, 1X/DAY EVERY MORNING
  6. LYRICA [Suspect]
     Active Substance: PREGABALIN
     Dosage: 100 MG, UNK
     Route: 048
     Dates: start: 20140217
  7. LIPITOR [Concomitant]
     Active Substance: ATORVASTATIN CALCIUM
     Dosage: 40 MG, UNK
  8. FUROSEMIDE. [Concomitant]
     Active Substance: FUROSEMIDE
     Indication: FLUID RETENTION
     Dosage: 20 MG, UNK (AS A WATER PILL)
  9. ISOSORBIDE. [Concomitant]
     Active Substance: ISOSORBIDE
     Dosage: 15 MG, UNK
  10. WARFARIN SODIUM. [Concomitant]
     Active Substance: WARFARIN SODIUM
     Indication: BLOOD VISCOSITY INCREASED
  11. HYDROCODONE/ACETAMINOPHEN [Concomitant]
     Active Substance: ACETAMINOPHEN\HYDROCODONE
     Dosage: MOST OF THE TIME USED TWO
  12. IMDUR [Concomitant]
     Active Substance: ISOSORBIDE MONONITRATE
     Dosage: 30 MG, 1X/DAY (IN THE MORNING)
     Dates: start: 20130614
  13. LECITHIN [Concomitant]
     Active Substance: LECITHIN
     Dosage: 1200 MG, UNK
  14. COENZYME Q10 [Concomitant]
     Active Substance: UBIDECARENONE
  15. FISH OIL [Concomitant]
     Active Substance: FISH OIL
  16. HYDROCODONE/ACETAMINOPHEN [Concomitant]
     Active Substance: ACETAMINOPHEN\HYDROCODONE
     Indication: PAIN
     Dosage: ONE EVERY FOUR HOURS AS NEEDED
  17. POTASSIUM [Concomitant]
     Active Substance: POTASSIUM
     Dosage: 10 MG, UNK
  18. LIPITOR [Concomitant]
     Active Substance: ATORVASTATIN CALCIUM
     Dosage: 80 MG, 1X/DAY
  19. ARGININE [Concomitant]
     Active Substance: ARGININE
  20. VITAMIN E [Concomitant]
     Active Substance: .ALPHA.-TOCOPHEROL
  21. LYRICA [Suspect]
     Active Substance: PREGABALIN
     Indication: PAIN
     Dosage: UNK, 3X/DAY
     Route: 048
     Dates: start: 20131212
  22. AMIODARONE [Concomitant]
     Active Substance: AMIODARONE
     Indication: CARDIAC DISORDER
     Dosage: 100 MG, DAILY
  23. HYDROCODONE/ACETAMINOPHEN [Concomitant]
     Active Substance: ACETAMINOPHEN\HYDROCODONE
     Dosage: INCREASED TO FOUR
  24. NORCO [Concomitant]
     Active Substance: ACETAMINOPHEN\HYDROCODONE BITARTRATE
     Dosage: 1 DF, 4X/DAY (HYDROCODONE BITARTRATE-5MG, PARACETAMOL-325MG)
     Dates: start: 20150113
  25. CYMBALTA [Concomitant]
     Active Substance: DULOXETINE HYDROCHLORIDE
     Dosage: 30 MG, 1X/DAY
     Route: 048
  26. NITROSTAT [Concomitant]
     Active Substance: NITROGLYCERIN
     Dosage: 1 TAB UNDER TONGUE Q 5 MAXIMUM OR USE 3 TAB IN 15 MINUTES
     Route: 060
     Dates: start: 20150715
  27. FLAXSEED [Concomitant]
     Active Substance: FLAX SEED
  28. ASPIRIN. [Concomitant]
     Active Substance: ASPIRIN
     Dosage: 81 MG, 1X/DAY
  29. NITROQUICK [Concomitant]
     Active Substance: NITROGLYCERIN
     Dosage: 0.4 MG, AS NEEDED
     Route: 060
  30. LYRICA [Suspect]
     Active Substance: PREGABALIN
     Indication: PAIN
     Dosage: 50 MG, UNK
     Route: 048
     Dates: start: 20130304

REACTIONS (2)
  - Cerebrovascular accident [Unknown]
  - Drug ineffective for unapproved indication [Unknown]

NARRATIVE: CASE EVENT DATE: 20130304
